FAERS Safety Report 10251790 (Version 1)
Quarter: 2014Q2

REPORT INFORMATION
  Report Type: Spontaneous
  Country: CH (occurrence: CH)
  Receive Date: 20140623
  Receipt Date: 20140623
  Transmission Date: 20141212
  Serious: Yes (Hospitalization)
  Sender: FDA-Public Use
  Company Number: CH-ORION CORPORATION ORION PHARMA-ENT 2014-0095

PATIENT
  Age: 79 Year
  Sex: Female

DRUGS (13)
  1. COMTAN [Suspect]
     Indication: PARKINSON^S DISEASE
     Route: 048
     Dates: start: 20140215, end: 201402
  2. EXELON [Interacting]
     Indication: DEMENTIA
     Route: 062
  3. LEPONEX [Suspect]
     Route: 048
  4. QUILONORM [Interacting]
     Indication: DEPRESSION
     Route: 048
     Dates: end: 20140219
  5. QUILONORM [Interacting]
     Route: 065
     Dates: start: 20140224, end: 201402
  6. REQUIP [Interacting]
     Indication: PARKINSON^S DISEASE
     Route: 048
     Dates: end: 201402
  7. MADOPAR [Interacting]
     Indication: PARKINSON^S DISEASE
     Dosage: STRENGTH: 62.5
     Route: 048
     Dates: start: 20140215
  8. TIAPRIDE HYDROCHLORIDE [Interacting]
     Route: 048
     Dates: end: 201402
  9. SINEMET [Concomitant]
     Route: 065
  10. ESOMEP [Concomitant]
     Route: 065
  11. SPASMO URGENIN [Concomitant]
     Route: 065
  12. MOVICOL [Concomitant]
     Route: 065
  13. NITRODERM [Concomitant]
     Route: 065

REACTIONS (3)
  - Drug interaction [Unknown]
  - Delirium [Recovered/Resolved]
  - Hallucination [Recovered/Resolved]
